FAERS Safety Report 23249414 (Version 2)
Quarter: 2023Q4

REPORT INFORMATION
  Report Type: Spontaneous
  Country: JP (occurrence: JP)
  Receive Date: 20231201
  Receipt Date: 20231212
  Transmission Date: 20240110
  Serious: Yes (Hospitalization, Other)
  Sender: FDA-Public Use
  Company Number: JP-GLAXOSMITHKLINE-JP2023JPN165627

PATIENT

DRUGS (2)
  1. DAPRODUSTAT [Suspect]
     Active Substance: DAPRODUSTAT
     Indication: Nephrogenic anaemia
     Dosage: 6 MG, 1D
     Route: 048
     Dates: start: 20231106
  2. ENARODUSTAT [Concomitant]
     Active Substance: ENARODUSTAT
     Indication: Nephrogenic anaemia
     Dosage: UNK, 1D

REACTIONS (3)
  - Melaena [Recovered/Resolved]
  - Haemoglobin decreased [Unknown]
  - Product use issue [Unknown]

NARRATIVE: CASE EVENT DATE: 20231119
